FAERS Safety Report 17607272 (Version 1)
Quarter: 2020Q1

REPORT INFORMATION
  Report Type: Spontaneous
  Country: US (occurrence: US)
  Receive Date: 20200331
  Receipt Date: 20200331
  Transmission Date: 20200409
  Serious: Yes (Other)
  Sender: FDA-Public Use
  Company Number: US-AUROBINDO-AUR-APL-2020-015859

PATIENT
  Age: 12 Year
  Sex: Female

DRUGS (2)
  1. TRANEXAMIC ACID INJECTION [Suspect]
     Active Substance: TRANEXAMIC ACID
     Indication: UTERINE HAEMORRHAGE
     Dosage: UNK
     Route: 065
  2. DEPO-PROVERA [Suspect]
     Active Substance: MEDROXYPROGESTERONE ACETATE
     Indication: UTERINE HAEMORRHAGE
     Dosage: UNK
     Route: 065

REACTIONS (1)
  - Drug ineffective [Unknown]
